FAERS Safety Report 7637055-7 (Version None)
Quarter: 2011Q3

REPORT INFORMATION
  Report Type: 
  Country: None (occurrence: None)
  Receive Date: 20110722
  Receipt Date: 20110722
  Transmission Date: 20111222
  Serious: Yes (Life-Threatening, Other)
  Sender: FDA-Public Use
  Company Number: None

PATIENT
  Age: 75 Year
  Sex: Male
  Weight: 97.5234 kg

DRUGS (2)
  1. LORAZEPAM INTENSOL [Suspect]
     Indication: ANXIETY
     Dosage: 1 MG (.5ML) EVERY 4 HRS AS NEEDED FOR PANIC ORAL
     Route: 048
     Dates: start: 20110324, end: 20110501
  2. LORAZEPAM INTENSOL [Suspect]
     Indication: PANIC REACTION
     Dosage: 1 MG (.5ML) EVERY 4 HRS AS NEEDED FOR PANIC ORAL
     Route: 048
     Dates: start: 20110324, end: 20110501

REACTIONS (9)
  - DEPRESSION [None]
  - INSOMNIA [None]
  - GAIT DISTURBANCE [None]
  - OESOPHAGEAL PERFORATION [None]
  - SUICIDAL IDEATION [None]
  - AMNESIA [None]
  - MENTAL DISORDER [None]
  - WITHDRAWAL SYNDROME [None]
  - SPEECH DISORDER [None]
